FAERS Safety Report 16660950 (Version 1)
Quarter: 2019Q3

REPORT INFORMATION
  Report Type: Spontaneous
  Country: NZ (occurrence: NZ)
  Receive Date: 20190801
  Receipt Date: 20190801
  Transmission Date: 20191004
  Serious: Yes (Disabling)
  Sender: FDA-Public Use
  Company Number: None

PATIENT
  Age: 8 Year
  Sex: Female
  Weight: 27 kg

DRUGS (3)
  1. OTC VITAMIN SUPPLEMENT-SANDERSON ZOO ONE-A-DAY KIDS MULTI [Concomitant]
  2. DERMOL [CLOBETASOL] [Suspect]
     Active Substance: CLOBETASOL
     Indication: ECZEMA
     Route: 061
     Dates: start: 20181010, end: 20181208
  3. LOCOID [Suspect]
     Active Substance: HYDROCORTISONE BUTYRATE
     Indication: ECZEMA
     Dosage: ?          OTHER STRENGTH:MG/G;?
     Route: 061
     Dates: start: 20141031, end: 20181208

REACTIONS (14)
  - Steroid withdrawal syndrome [None]
  - Hypothalamic pituitary adrenal axis suppression [None]
  - Drug ineffective [None]
  - Psoriasis [None]
  - Rash erythematous [None]
  - Blood thyroid stimulating hormone increased [None]
  - Eczema [None]
  - Skin weeping [None]
  - Eczema eyelids [None]
  - Skin exfoliation [None]
  - Periorbital cellulitis [None]
  - Rash pruritic [None]
  - Dependence [None]
  - Drug abuse [None]

NARRATIVE: CASE EVENT DATE: 20181022
